FAERS Safety Report 4639161-8 (Version None)
Quarter: 2005Q2

REPORT INFORMATION
  Report Type: 
  Country: None (occurrence: None)
  Receive Date: 20050418
  Receipt Date: 20050406
  Transmission Date: 20051028
  Serious: Yes (Hospitalization)
  Sender: FDA-Public Use
  Company Number: 200510235BFR

PATIENT
  Age: 41 Year
  Sex: Male

DRUGS (6)
  1. MOXIFLOXACIN HYDROCHLORIDE [Suspect]
     Indication: COUGH
     Dosage: 400 MG, TOTAL DAILY, ORAL
     Route: 048
     Dates: start: 20041201, end: 20041231
  2. MOXIFLOXACIN HYDROCHLORIDE [Suspect]
     Indication: PRODUCTIVE COUGH
     Dosage: 400 MG, TOTAL DAILY, ORAL
     Route: 048
     Dates: start: 20041201, end: 20041231
  3. MOXIFLOXACIN HYDROCHLORIDE [Suspect]
     Indication: PYREXIA
     Dosage: 400 MG, TOTAL DAILY, ORAL
     Route: 048
     Dates: start: 20041201, end: 20041231
  4. PEGASYS [Suspect]
     Dosage: NI, OW, SUBCUTANEOUS
     Route: 058
     Dates: start: 20041005, end: 20041231
  5. COPEGUS [Suspect]
     Dosage: NI, BID, ORAL
     Route: 048
     Dates: start: 20041005, end: 20041231
  6. COMBIVIR [Concomitant]

REACTIONS (6)
  - EPISTAXIS [None]
  - GINGIVAL BLEEDING [None]
  - HEPATOMEGALY [None]
  - PANCYTOPENIA [None]
  - PETECHIAE [None]
  - THROMBOCYTOPENIA [None]
